FAERS Safety Report 14958772 (Version 1)
Quarter: 2018Q2

REPORT INFORMATION
  Report Type: Spontaneous
  Country: DE (occurrence: DE)
  Receive Date: 20180531
  Receipt Date: 20180531
  Transmission Date: 20180711
  Serious: Yes (Hospitalization, Other)
  Sender: FDA-Public Use
  Company Number: DE-GLAXOSMITHKLINE-DE2018092644

PATIENT
  Age: 34 Year
  Sex: Male
  Weight: 70 kg

DRUGS (4)
  1. PROPECIA [Suspect]
     Active Substance: FINASTERIDE
     Dosage: 1 MG / DAILY
     Route: 048
  2. PROPECIA [Suspect]
     Active Substance: FINASTERIDE
     Indication: ANDROGENETIC ALOPECIA
     Dosage: 1 MG, QD
     Route: 048
     Dates: start: 20020701, end: 2006
  3. ELONTRIL [Suspect]
     Active Substance: BUPROPION HYDROCHLORIDE
     Indication: DEPRESSION
     Dosage: UNK
     Route: 065
     Dates: start: 20130205, end: 20130307
  4. ELONTRIL [Suspect]
     Active Substance: BUPROPION HYDROCHLORIDE
     Dosage: 150 MG, QAM
     Route: 065
     Dates: start: 20160606

REACTIONS (74)
  - Sleep apnoea syndrome [Not Recovered/Not Resolved]
  - Hypotrichosis [Unknown]
  - Nasopharyngitis [Unknown]
  - Memory impairment [Unknown]
  - Weight increased [Unknown]
  - Sperm concentration decreased [Unknown]
  - Depression [Not Recovered/Not Resolved]
  - Feeling abnormal [Unknown]
  - Melanocytic naevus [Unknown]
  - Depression [Not Recovered/Not Resolved]
  - Sensory disturbance [Unknown]
  - Onychomycosis [Unknown]
  - Cardiac murmur [Unknown]
  - Bronchitis [Unknown]
  - General physical health deterioration [Unknown]
  - Male orgasmic disorder [Unknown]
  - Hair colour changes [Unknown]
  - Adrenocorticotropic hormone deficiency [Unknown]
  - Anxiety [Unknown]
  - Dyspepsia [Unknown]
  - Sleep disorder [Unknown]
  - Myalgia [Unknown]
  - Testicular pain [Unknown]
  - Suicidal ideation [Unknown]
  - Influenza [Recovering/Resolving]
  - Panic attack [Unknown]
  - Penile pain [Unknown]
  - Headache [Unknown]
  - Visual impairment [Unknown]
  - Mood swings [Unknown]
  - Weight decreased [Unknown]
  - Dizziness [Not Recovered/Not Resolved]
  - Acne [Not Recovered/Not Resolved]
  - Tremor [Unknown]
  - Nasal abscess [Unknown]
  - Visual impairment [Unknown]
  - Apathy [Unknown]
  - Fatigue [Not Recovered/Not Resolved]
  - Loss of libido [Unknown]
  - Depression [Unknown]
  - Anhedonia [Unknown]
  - Gastric disorder [Unknown]
  - Blepharitis [Not Recovered/Not Resolved]
  - Erectile dysfunction [Unknown]
  - Skin atrophy [Unknown]
  - Prostatic pain [Unknown]
  - Disorientation [Unknown]
  - Conjunctivitis [Unknown]
  - Alopecia [Unknown]
  - Serum sickness [Unknown]
  - Skin discolouration [Unknown]
  - Palpitations [Unknown]
  - Derealisation [Not Recovered/Not Resolved]
  - Tinnitus [Not Recovered/Not Resolved]
  - Adverse drug reaction [Unknown]
  - Localised infection [Unknown]
  - Upper respiratory tract infection [Unknown]
  - Chronic fatigue syndrome [Not Recovered/Not Resolved]
  - Burnout syndrome [Unknown]
  - Sinusitis [Unknown]
  - Eczema [Not Recovered/Not Resolved]
  - Lipoatrophy [Unknown]
  - Nasopharyngitis [Unknown]
  - Arthralgia [Unknown]
  - Dry skin [Not Recovered/Not Resolved]
  - Cough [Unknown]
  - Muscular weakness [Unknown]
  - Cognitive disorder [Not Recovered/Not Resolved]
  - Muscle twitching [Unknown]
  - Anorgasmia [Unknown]
  - Performance status decreased [Unknown]
  - Muscle atrophy [Unknown]
  - Disturbance in attention [Not Recovered/Not Resolved]
  - Hyperhidrosis [Unknown]

NARRATIVE: CASE EVENT DATE: 2002
